FAERS Safety Report 21032165 (Version 1)
Quarter: 2022Q3

REPORT INFORMATION
  Report Type: Spontaneous
  Country: TR (occurrence: TR)
  Receive Date: 20220701
  Receipt Date: 20220701
  Transmission Date: 20221026
  Serious: Yes (Other)
  Sender: FDA-Public Use
  Company Number: TR-NOVARTISPH-NVSC2022TR149537

PATIENT
  Age: 10 Year
  Sex: Male

DRUGS (14)
  1. TOPOTECAN [Suspect]
     Active Substance: TOPOTECAN HYDROCHLORIDE
     Indication: Retinoblastoma
     Dosage: 6 UG
     Route: 031
  2. TOPOTECAN [Suspect]
     Active Substance: TOPOTECAN HYDROCHLORIDE
     Dosage: 7 UG
     Route: 031
  3. TOPOTECAN [Suspect]
     Active Substance: TOPOTECAN HYDROCHLORIDE
     Dosage: 6 UG
     Route: 031
  4. TOPOTECAN [Suspect]
     Active Substance: TOPOTECAN HYDROCHLORIDE
     Dosage: 6 UG
     Route: 031
  5. TOPOTECAN [Suspect]
     Active Substance: TOPOTECAN HYDROCHLORIDE
     Dosage: 20 UG
     Route: 031
  6. TOPOTECAN [Suspect]
     Active Substance: TOPOTECAN HYDROCHLORIDE
     Dosage: 20 UG
     Route: 031
  7. TOPOTECAN [Suspect]
     Active Substance: TOPOTECAN HYDROCHLORIDE
     Dosage: 20 UG
     Route: 031
  8. MELPHALAN [Suspect]
     Active Substance: MELPHALAN
     Indication: Retinoblastoma
     Dosage: 30 UG
     Route: 031
  9. MELPHALAN [Suspect]
     Active Substance: MELPHALAN
     Dosage: 32 UG
     Route: 031
  10. MELPHALAN [Suspect]
     Active Substance: MELPHALAN
     Dosage: 35 UG
     Route: 031
  11. MELPHALAN [Suspect]
     Active Substance: MELPHALAN
     Dosage: 35 UG
     Route: 031
  12. MELPHALAN [Suspect]
     Active Substance: MELPHALAN
     Dosage: 40 UG
     Route: 031
  13. MELPHALAN [Suspect]
     Active Substance: MELPHALAN
     Dosage: 40 UG
     Route: 031
  14. MELPHALAN [Suspect]
     Active Substance: MELPHALAN
     Dosage: 40 UG
     Route: 031

REACTIONS (3)
  - Cataract nuclear [Recovering/Resolving]
  - Product use issue [Unknown]
  - Product use in unapproved indication [Unknown]
